FAERS Safety Report 22130419 (Version 1)
Quarter: 2023Q1

REPORT INFORMATION
  Report Type: Spontaneous
  Country: CN (occurrence: CN)
  Receive Date: 20230323
  Receipt Date: 20230323
  Transmission Date: 20230417
  Serious: Yes (Other)
  Sender: FDA-Public Use
  Company Number: CN-PFIZER INC-PV202300053863

PATIENT
  Age: 11 Year
  Sex: Male
  Weight: 33 kg

DRUGS (3)
  1. SOLU-MEDROL [Suspect]
     Active Substance: METHYLPREDNISOLONE SODIUM SUCCINATE
     Indication: Immune thrombocytopenia
     Dosage: 65 MG, 2X/DAY
     Route: 041
     Dates: start: 20230106, end: 20230110
  2. MEDROL [Suspect]
     Active Substance: METHYLPREDNISOLONE
     Indication: Immune thrombocytopenia
     Dosage: 16 MG, 2X/DAY
     Route: 048
     Dates: start: 20230114, end: 20230116
  3. METHYLPREDNISOLONE SODIUM SUCCINATE [Suspect]
     Active Substance: METHYLPREDNISOLONE SODIUM SUCCINATE
     Indication: Immune thrombocytopenia
     Dosage: 40 MG, 2X/DAY
     Route: 041
     Dates: start: 20230110, end: 20230114

REACTIONS (1)
  - Ocular hypertension [Unknown]

NARRATIVE: CASE EVENT DATE: 20230117
